FAERS Safety Report 5873539-X (Version None)
Quarter: 2008Q3

REPORT INFORMATION
  Report Type: 
  Country: None (occurrence: None)
  Receive Date: 20080908
  Receipt Date: 20080829
  Transmission Date: 20090109
  Serious: Yes (Other)
  Sender: FDA-Public Use
  Company Number: FR-AMGEN-UK304994

PATIENT
  Age: 34 Year
  Sex: Female

DRUGS (1)
  1. KINERET [Suspect]
     Indication: DRUG USE FOR UNKNOWN INDICATION
     Route: 058
     Dates: start: 20050701

REACTIONS (2)
  - HERPES VIRUS INFECTION [None]
  - NEUTROPENIA [None]
